FAERS Safety Report 18848390 (Version 1)
Quarter: 2021Q1

REPORT INFORMATION
  Report Type: Spontaneous
  Country: CL (occurrence: CL)
  Receive Date: 20210204
  Receipt Date: 20210204
  Transmission Date: 20210419
  Serious: Yes (Other)
  Sender: FDA-Public Use
  Company Number: CL-ROCHE-2158480

PATIENT
  Sex: Female

DRUGS (1)
  1. XELODA [Suspect]
     Active Substance: CAPECITABINE
     Indication: PRODUCT USED FOR UNKNOWN INDICATION
     Dosage: FREQUENCY AND DOSE ARE UNKNOWN
     Route: 065

REACTIONS (2)
  - Diabetes mellitus [Unknown]
  - Nausea [Unknown]

NARRATIVE: CASE EVENT DATE: 20180718
